FAERS Safety Report 7771553-0 (Version None)
Quarter: 2011Q3

REPORT INFORMATION
  Report Type: 
  Country: None (occurrence: None)
  Receive Date: 20110922
  Receipt Date: 20110413
  Transmission Date: 20111222
  Serious: Yes (Hospitalization)
  Sender: FDA-Public Use
  Company Number: US-ASTRAZENECA-2009UW17566

PATIENT
  Age: 30 Year
  Sex: Female
  Weight: 97.5 kg

DRUGS (24)
  1. SEROQUEL [Suspect]
     Indication: BIPOLAR DISORDER
     Route: 048
     Dates: start: 19980101
  2. SEROQUEL [Suspect]
     Route: 048
     Dates: start: 20051115
  3. RISPERDAL [Concomitant]
     Route: 048
     Dates: start: 20051115
  4. SEROQUEL [Suspect]
     Indication: INSOMNIA
     Route: 048
     Dates: start: 19980101
  5. ZYPREXA [Concomitant]
     Indication: BIPOLAR DISORDER
     Dates: start: 19980101, end: 19980101
  6. EFFEXOR [Concomitant]
     Dosage: 37.5 MG PLUS 75 MG QAM
     Route: 048
     Dates: start: 20051115
  7. XANAX [Concomitant]
  8. LASIX [Concomitant]
     Dates: start: 20081201
  9. SEROQUEL [Suspect]
     Route: 048
     Dates: start: 20051115
  10. SEROQUEL [Suspect]
     Route: 048
     Dates: start: 20051115
  11. RISPERDAL [Concomitant]
     Indication: SCHIZOPHRENIA
     Dates: start: 19970101
  12. RISPERDAL [Concomitant]
     Route: 048
     Dates: start: 20051115
  13. EFFEXOR [Concomitant]
  14. ZYPREXA [Concomitant]
     Indication: SCHIZOPHRENIA
     Dates: start: 19980101, end: 19980101
  15. CLONAZEPAM [Concomitant]
     Route: 048
     Dates: start: 20051115
  16. POTASSIUM [Concomitant]
     Dates: start: 20081201
  17. RISPERDAL [Concomitant]
     Route: 048
     Dates: start: 20051115
  18. RISPERDAL [Concomitant]
     Indication: BIPOLAR DISORDER
     Dates: start: 19970101
  19. RISPERDAL [Concomitant]
     Indication: INSOMNIA
     Dates: start: 19970101
  20. ZYPREXA [Concomitant]
     Indication: INSOMNIA
     Dates: start: 19980101, end: 19980101
  21. LEVOTHYROXINE SODIUM [Concomitant]
     Dates: start: 20051115
  22. DEPAKOTE ER [Concomitant]
     Route: 048
     Dates: start: 20051115
  23. SEROQUEL [Suspect]
     Indication: SCHIZOPHRENIA
     Route: 048
     Dates: start: 19980101
  24. AVINZA [Concomitant]
     Route: 048
     Dates: start: 20051115

REACTIONS (10)
  - HYPOGLYCAEMIA [None]
  - OBESITY [None]
  - BLOOD CHOLESTEROL INCREASED [None]
  - HYPERLIPIDAEMIA [None]
  - TYPE 2 DIABETES MELLITUS [None]
  - TYPE 1 DIABETES MELLITUS [None]
  - WEIGHT INCREASED [None]
  - HYPERGLYCAEMIA [None]
  - BLOOD TRIGLYCERIDES INCREASED [None]
  - INSULIN-REQUIRING TYPE 2 DIABETES MELLITUS [None]
